FAERS Safety Report 9239418 (Version 1)
Quarter: 2013Q2

REPORT INFORMATION
  Report Type: Spontaneous
  Country: US (occurrence: US)
  Receive Date: 20130418
  Receipt Date: 20130418
  Transmission Date: 20140414
  Serious: No
  Sender: FDA-Public Use
  Company Number: US-009507513-1304USA007319

PATIENT
  Sex: Female
  Weight: 75.28 kg

DRUGS (2)
  1. NEXPLANON [Suspect]
     Dosage: 1 ROD/3 YEARS
     Route: 059
     Dates: start: 20120829, end: 20130411
  2. NEXPLANON [Suspect]
     Dosage: UNK
     Route: 059
     Dates: start: 201304

REACTIONS (2)
  - Device breakage [Recovered/Resolved]
  - No adverse event [Unknown]
